FAERS Safety Report 6858652-2 (Version None)
Quarter: 2010Q3

REPORT INFORMATION
  Report Type: 
  Country: None (occurrence: None)
  Receive Date: 20100719
  Receipt Date: 20080211
  Transmission Date: 20110219
  Serious: No
  Sender: FDA-Public Use
  Company Number: US-PFIZER INC-2008014980

PATIENT
  Sex: Female
  Weight: 61.2 kg

DRUGS (4)
  1. CHANTIX [Suspect]
     Indication: SMOKING CESSATION THERAPY
     Dosage: EVERY DAY
     Route: 048
     Dates: start: 20070914
  2. SEROQUEL [Concomitant]
     Indication: SLEEP DISORDER
  3. LAMICTAL [Concomitant]
  4. PROZAC [Concomitant]

REACTIONS (5)
  - AGITATION [None]
  - FEELING ABNORMAL [None]
  - IRRITABILITY [None]
  - MALAISE [None]
  - WITHDRAWAL SYNDROME [None]
